FAERS Safety Report 8612890 (Version 2)
Quarter: 2014Q1

REPORT INFORMATION
  Report Type: Spontaneous
  Country: US (occurrence: None)
  Receive Date: 20120323
  Receipt Date: 20130305
  Transmission Date: 20141002
  Serious: Yes (Hospitalization, Other)
  Sender: FDA-Public Use
  Company Number: 163-21880-11123303

PATIENT
  Age: 57 Year
  Sex: Male
  Weight: 76 kg

DRUGS (1)
  1. REVLIMID [Suspect]
     Indication: PLASMA CELL MYELOMA
     Route: 048
     Dates: start: 20110206

REACTIONS (4)
  - Pneumonia [None]
  - Influenza [None]
  - Chest pain [None]
  - Dyspnoea [None]
